FAERS Safety Report 12845162 (Version 2)
Quarter: 2016Q4

REPORT INFORMATION
  Report Type: Report from Study
  Country: US (occurrence: US)
  Receive Date: 20161013
  Receipt Date: 20161202
  Transmission Date: 20170207
  Serious: Yes (Hospitalization, Other)
  Sender: FDA-Public Use
  Company Number: US-ACTELION-A-NJ2016-143266

PATIENT
  Age: 50 Year
  Sex: Female
  Weight: 131.52 kg

DRUGS (2)
  1. UPTRAVI [Suspect]
     Active Substance: SELEXIPAG
     Indication: PULMONARY ARTERIAL HYPERTENSION
     Dosage: 1400 MCG, BID
     Route: 048
     Dates: start: 20160504
  2. ADCIRCA [Concomitant]
     Active Substance: TADALAFIL
     Dosage: UNK

REACTIONS (6)
  - Malaise [Unknown]
  - Pulmonary veno-occlusive disease [Unknown]
  - Activities of daily living impaired [Unknown]
  - Pericardial effusion [Unknown]
  - Brain natriuretic peptide increased [Unknown]
  - Dyspnoea [Unknown]
